FAERS Safety Report 24197653 (Version 1)
Quarter: 2024Q3

REPORT INFORMATION
  Report Type: Spontaneous
  Country: US (occurrence: US)
  Receive Date: 20240811
  Receipt Date: 20240811
  Transmission Date: 20241016
  Serious: Yes (Other)
  Sender: SANOFI AVENTIS
  Company Number: US-SA-SAC20240809000088

PATIENT
  Sex: Male
  Weight: 79 kg

DRUGS (2)
  1. DUPIXENT [Suspect]
     Active Substance: DUPILUMAB
     Indication: Dermatitis atopic
     Dosage: 300 MG, QOW
     Route: 058
  2. ORGOVYX [Concomitant]
     Active Substance: RELUGOLIX
     Dosage: UNK

REACTIONS (1)
  - Prostate cancer [Unknown]
